FAERS Safety Report 7031334-2 (Version None)
Quarter: 2010Q4

REPORT INFORMATION
  Report Type: 
  Country: None (occurrence: None)
  Receive Date: 20101006
  Receipt Date: 20100930
  Transmission Date: 20110411
  Serious: Yes (Life-Threatening, Other)
  Sender: FDA-Public Use
  Company Number: JP-ROCHE-662277

PATIENT
  Sex: Male
  Weight: 62.1 kg

DRUGS (29)
  1. TOCILIZUMAB [Suspect]
     Indication: RHEUMATOID ARTHRITIS
     Route: 041
     Dates: start: 20090612, end: 20090612
  2. TOCILIZUMAB [Suspect]
     Route: 041
     Dates: start: 20090710, end: 20090710
  3. TOCILIZUMAB [Suspect]
     Route: 041
     Dates: start: 20090807, end: 20090807
  4. TOCILIZUMAB [Suspect]
     Route: 041
     Dates: start: 20090903, end: 20090903
  5. TOCILIZUMAB [Suspect]
     Route: 041
     Dates: start: 20091002, end: 20091002
  6. TOCILIZUMAB [Suspect]
     Route: 041
     Dates: start: 20091030, end: 20091030
  7. TOCILIZUMAB [Suspect]
     Route: 041
     Dates: start: 20091127
  8. TOCILIZUMAB [Suspect]
     Route: 041
     Dates: start: 20100910
  9. PREDNISOLONE [Suspect]
     Indication: RHEUMATOID ARTHRITIS
     Dosage: DOSE FORM: PERORAL AGENT
     Route: 048
     Dates: start: 20071004, end: 20090519
  10. PREDNISOLONE [Suspect]
     Route: 048
     Dates: start: 20090520, end: 20090710
  11. PREDNISOLONE [Suspect]
     Route: 048
     Dates: start: 20090711
  12. GARENOXACIN MESILATE [Suspect]
     Indication: PRODUCT USED FOR UNKNOWN INDICATION
     Dosage: DRUG REPORTED AS: GENINAX
     Route: 048
  13. BREDININ [Suspect]
     Indication: RHEUMATOID ARTHRITIS
     Route: 048
     Dates: start: 20100219
  14. TAKEPRON [Concomitant]
     Route: 048
     Dates: start: 20090422
  15. INDOMETHACIN SODIUM [Concomitant]
     Dosage: DOSE FORM: SUSTAINED RELEASE CAPSULE
     Route: 048
     Dates: start: 20071004
  16. INDOMETHACIN SODIUM [Concomitant]
     Dosage: FORM: SUSTAINED RELEASE CAPSULE DRUG REPORTED AS: INTEBAN SP(INDOMETACIN)
     Route: 048
     Dates: start: 20090422
  17. ASPIRIN [Concomitant]
     Dosage: DOSE FORM: ENTERIC COATING DRUG
     Route: 048
     Dates: start: 20071004
  18. BENET [Concomitant]
     Route: 048
     Dates: start: 20071004
  19. BENET [Concomitant]
     Dosage: DRUG REPORTED AS: BENET(SODIUM RISEDRONATE HYDRATE)
     Route: 048
     Dates: start: 20090422
  20. BASEN [Concomitant]
     Route: 048
     Dates: start: 20080229
  21. BASEN [Concomitant]
     Dosage: DRUG REPORTED AS: BASEN OD(VOGLIBOSE)
     Route: 048
     Dates: start: 20090422
  22. AMLODIPINE BESYLATE [Concomitant]
     Dosage: DRUG REPORTED AS: AMLODIN OD(AMLODIPINE BESILATE)
     Route: 048
     Dates: start: 20071004
  23. TANATRIL [Concomitant]
     Route: 048
     Dates: start: 20071004
  24. TANATRIL [Concomitant]
     Dosage: DRUG REPORTED AS: TANATRIL(IMIDAPRIL HYDROCHLORIDE)
     Route: 048
     Dates: start: 20090422
  25. ALLEGRA [Concomitant]
     Dosage: DRUG REPORTED AS: ALLEGRA(FEXOFENADINE HYDROCHLORIDE)
     Route: 048
     Dates: start: 20090422
  26. ZETIA [Concomitant]
     Route: 048
     Dates: start: 20090903
  27. AUROTHIOMALATE [Concomitant]
     Dosage: DRUG: SHIOSOL(SODIUM AUROTHIOMALATE)
     Route: 030
     Dates: start: 20100219
  28. FASTIC [Concomitant]
     Route: 048
     Dates: start: 20080229
  29. OMEPRAL [Concomitant]
     Route: 048
     Dates: start: 20071004

REACTIONS (4)
  - CELLULITIS [None]
  - DIABETES MELLITUS [None]
  - HYPERCHOLESTEROLAEMIA [None]
  - HYPERTRIGLYCERIDAEMIA [None]
